FAERS Safety Report 9926630 (Version 1)
Quarter: 2014Q1

REPORT INFORMATION
  Report Type: Spontaneous
  Country: US (occurrence: US)
  Receive Date: 20140226
  Receipt Date: 20140226
  Transmission Date: 20141002
  Serious: No
  Sender: FDA-Public Use
  Company Number: US-AMGEN-USASP2013075731

PATIENT
  Age: 48 Year
  Sex: Female
  Weight: 76.19 kg

DRUGS (4)
  1. ENBREL [Suspect]
     Indication: PRODUCT USED FOR UNKNOWN INDICATION
     Dosage: 50 MG, QWK
     Route: 058
  2. ESTER C                            /00008001/ [Concomitant]
     Dosage: UNK
     Route: 048
  3. ADIPEX-P [Concomitant]
     Dosage: 37.5 MG, UNK
     Route: 048
  4. SUPER B COMPL [Concomitant]
     Dosage: UNK
     Route: 048

REACTIONS (2)
  - Drug effect decreased [Unknown]
  - Joint swelling [Unknown]
